FAERS Safety Report 8041776-4 (Version None)
Quarter: 2012Q1

REPORT INFORMATION
  Report Type: 
  Country: None (occurrence: None)
  Receive Date: 20120112
  Receipt Date: 20120104
  Transmission Date: 20120608
  Serious: Yes (Other)
  Sender: FDA-Public Use
  Company Number: CA-JNJFOC-20120103267

PATIENT
  Sex: Male
  Weight: 70.2 kg

DRUGS (3)
  1. REMICADE [Suspect]
     Dosage: TOTAL OF 8 INFUSIONS TO DATE
     Route: 042
     Dates: start: 20120104
  2. REMICADE [Suspect]
     Indication: CROHN'S DISEASE
     Route: 042
  3. IMURAN [Concomitant]

REACTIONS (2)
  - ARTHRITIS [None]
  - ARTHRALGIA [None]
